FAERS Safety Report 7580621-8 (Version None)
Quarter: 2011Q2

REPORT INFORMATION
  Report Type: 
  Country: None (occurrence: None)
  Receive Date: 20110629
  Receipt Date: 20110624
  Transmission Date: 20111010
  Serious: Yes (Other)
  Sender: FDA-Public Use
  Company Number: US-PURDUE-USA-2011-0068995

PATIENT
  Sex: Female
  Weight: 47.075 kg

DRUGS (6)
  1. LYRICA [Concomitant]
     Indication: DIABETIC NEUROPATHY
     Dosage: 100 MG, Q12H
     Dates: start: 20100609
  2. LIDODERM [Concomitant]
     Indication: BACK PAIN
     Dosage: 5 %, Q12H
     Route: 062
     Dates: start: 20101101
  3. HYDROMORPHONE HCL [Concomitant]
     Dosage: 4 MG, Q4H PRN
  4. BUTRANS [Suspect]
     Dosage: 10 MCG/HR, UNK
     Route: 062
  5. HYDROMORPHONE HCL [Concomitant]
     Indication: PAIN
     Dosage: 8 MG, Q4H PRN
     Dates: start: 20090219
  6. BUTRANS [Suspect]
     Indication: PAIN
     Dosage: 20 MCG/HR, UNK
     Route: 062
     Dates: start: 20110205

REACTIONS (3)
  - PAIN [None]
  - DRUG EFFECT DECREASED [None]
  - PATHOLOGICAL FRACTURE [None]
